FAERS Safety Report 8901780 (Version 2)
Quarter: 2013Q1

REPORT INFORMATION
  Report Type: Spontaneous
  Country: US (occurrence: None)
  Receive Date: 20121105
  Receipt Date: 20130206
  Transmission Date: 20140127
  Serious: Yes (Hospitalization)
  Sender: FDA-Public Use
  Company Number: 2012-1199

PATIENT
  Sex: Male

DRUGS (14)
  1. KYPROLIS [Suspect]
     Indication: PLASMA CELL MYELOMA
     Dates: start: 20120920, end: 20121218
  2. ALLOPURINOL (ALLOPURINOL) (TABLET) (ALLOPURINOL) [Concomitant]
  3. PANTOPRAZOLE (PANTOPRAZOLE) (PANTOPRAZOLE) [Concomitant]
  4. FILGRASTIM (FILGRASTIM) (FILGRASTIM) [Concomitant]
  5. ACETAMINOPHEN (PARACETAMOL) (PARACETAMOL) [Concomitant]
  6. DIPHENHYDRAMINE (DIPHENHYDRAMINE) (DIPHENHYDRAMINE) [Concomitant]
  7. NSS (SODIUM CHLORIDE) (0.9 PERCENT) (SODIUM CHLORIDE) [Concomitant]
  8. ZOMETA (ZOLEDRONIC ACID ) (ZOLEDRONIC ACID) [Concomitant]
  9. GRANISETRON (GRANISETRON) (GRANISETRON) [Concomitant]
  10. DEXAMETHASONE (DEXAMETHASONE) (DEXAMETHASONE) [Concomitant]
  11. ONDANSETRON (ONDANSETRON) (ONDANSETRON) [Concomitant]
  12. NEPHROCAPS (ASCORBIC ACID) (ASCORBIC ACID) [Concomitant]
  13. CELEXA (CITALOPRAM HYDROBROMIDE) (CITALOPRAM HYDROBROMIDE) [Concomitant]
  14. VALACYCLOVIR (VALACICLOVIR HYDROCHLORIDE) (VALACICLOVIR HYDROCHLORIDE) [Concomitant]

REACTIONS (10)
  - Haemorrhage [None]
  - Renal failure [None]
  - Gastrointestinal haemorrhage [None]
  - Pancytopenia [None]
  - Epistaxis [None]
  - Renal failure acute [None]
  - Plasma cell myeloma [None]
  - Febrile neutropenia [None]
  - Pneumonia [None]
  - Pneumococcal sepsis [None]
